FAERS Safety Report 9674204 (Version 1)
Quarter: 2013Q4

REPORT INFORMATION
  Report Type: Spontaneous
  Country: FR (occurrence: FR)
  Receive Date: 20131106
  Receipt Date: 20131106
  Transmission Date: 20140711
  Serious: Yes (Death)
  Sender: FDA-Public Use
  Company Number: FR-ROCHE-1298024

PATIENT
  Age: 84 Year
  Sex: Female

DRUGS (9)
  1. ROCEPHINE [Suspect]
     Indication: PRODUCT USED FOR UNKNOWN INDICATION
     Route: 042
     Dates: start: 20130908, end: 20130921
  2. OFLOCET [Suspect]
     Indication: PRODUCT USED FOR UNKNOWN INDICATION
     Dosage: 200 MG
     Route: 048
     Dates: start: 20130911, end: 20130922
  3. GENTAMICIN [Concomitant]
     Route: 042
     Dates: start: 20130908, end: 20130911
  4. CLAMOXYL (FRANCE) [Concomitant]
     Dosage: 1 G
     Route: 048
     Dates: start: 20130917, end: 20130920
  5. ZYLORIC [Concomitant]
     Route: 048
     Dates: end: 20130922
  6. COUMADIN [Concomitant]
     Route: 048
     Dates: end: 20130920
  7. HEMIGOXINE NATIVELLE [Concomitant]
     Dosage: 0.125 MG
     Route: 048
     Dates: start: 20130911, end: 20130923
  8. LASILIX [Concomitant]
     Route: 048
  9. ZOPICLONE TABLETS [Concomitant]

REACTIONS (1)
  - Acute generalised exanthematous pustulosis [Fatal]
